FAERS Safety Report 4890782-7 (Version None)
Quarter: 2006Q1

REPORT INFORMATION
  Report Type: 
  Country: None (occurrence: None)
  Receive Date: 20060123
  Receipt Date: 20060112
  Transmission Date: 20060701
  Serious: Yes (Hospitalization, Other)
  Sender: FDA-Public Use
  Company Number: 2006008257

PATIENT
  Sex: Female

DRUGS (7)
  1. ZYRTEC-D 12 HOUR [Suspect]
     Indication: ASTHMA
  2. ZYRTEC-D 12 HOUR [Suspect]
     Indication: HYPERSENSITIVITY
  3. LEXAPRO [Suspect]
     Indication: DEPRESSION
     Dates: start: 20050114, end: 20050121
  4. LORAZEPAM [Concomitant]
  5. ZANTAC [Concomitant]
  6. SINGULAIR ^MERCK^ (MONTELUKAST SODIUM) [Concomitant]
  7. ALBUTEROL [Concomitant]

REACTIONS (5)
  - DEPRESSION [None]
  - DRUG HYPERSENSITIVITY [None]
  - DYSPNOEA [None]
  - HYPERTENSION [None]
  - LUNG DISORDER [None]
